FAERS Safety Report 7550248-2 (Version None)
Quarter: 2011Q2

REPORT INFORMATION
  Report Type: 
  Country: None (occurrence: None)
  Receive Date: 20110615
  Receipt Date: 20110614
  Transmission Date: 20111010
  Serious: Yes (Hospitalization)
  Sender: FDA-Public Use
  Company Number: GB-AMGEN-GBRCT2011030534

PATIENT
  Age: 53 Year
  Sex: Male

DRUGS (4)
  1. PANITUMUMAB [Suspect]
     Indication: OESOPHAGEAL CARCINOMA
     Dosage: UNK
     Dates: start: 20110120
  2. EPIRUBICIN [Concomitant]
     Dosage: UNK
     Dates: start: 20110120
  3. CAPECITABINE [Concomitant]
     Dosage: UNK
     Dates: start: 20110120
  4. OXALIPLATIN [Concomitant]
     Dosage: UNK
     Dates: start: 20110120

REACTIONS (3)
  - CHEST DISCOMFORT [None]
  - HYPERSENSITIVITY [None]
  - DYSPNOEA [None]
